FAERS Safety Report 8422281-X (Version None)
Quarter: 2012Q2

REPORT INFORMATION
  Report Type: 
  Country: None (occurrence: None)
  Receive Date: 20120608
  Receipt Date: 20120529
  Transmission Date: 20120825
  Serious: Yes (Death, Life-Threatening, Other)
  Sender: FDA-Public Use
  Company Number: JP-ROCHE-1070629

PATIENT
  Sex: Male
  Weight: 72 kg

DRUGS (10)
  1. DEXAMETHASONE SODIUM PHOSPHATE [Concomitant]
     Route: 041
     Dates: start: 20120413, end: 20120413
  2. ALOXI [Concomitant]
     Indication: PROPHYLAXIS OF NAUSEA AND VOMITING
     Route: 041
     Dates: start: 20120412, end: 20120412
  3. VOLTAREN-XR [Concomitant]
     Indication: ANALGESIC THERAPY
     Route: 048
     Dates: start: 20120405, end: 20120415
  4. DEXAMETHASONE SODIUM PHOSPHATE [Concomitant]
     Route: 041
     Dates: start: 20120414, end: 20120414
  5. CISPLATIN [Concomitant]
     Indication: LUNG ADENOCARCINOMA METASTATIC
     Route: 041
     Dates: start: 20120412, end: 20120412
  6. FOSAPREPITANT MEGLUMINE [Concomitant]
     Indication: PROPHYLAXIS OF NAUSEA AND VOMITING
     Route: 041
     Dates: start: 20120412, end: 20120412
  7. ALIMTA [Concomitant]
     Indication: LUNG ADENOCARCINOMA METASTATIC
     Route: 041
     Dates: start: 20120412, end: 20120412
  8. MUCOSTA [Concomitant]
     Indication: GASTRITIS PROPHYLAXIS
     Route: 048
     Dates: start: 20120403, end: 20120415
  9. DEXAMETHASONE SODIUM PHOSPHATE [Concomitant]
     Indication: PROPHYLAXIS OF NAUSEA AND VOMITING
     Route: 041
     Dates: start: 20120412, end: 20120412
  10. AVASTIN [Suspect]
     Indication: LUNG ADENOCARCINOMA METASTATIC
     Route: 041
     Dates: start: 20120412, end: 20120412

REACTIONS (4)
  - ACUTE MYOCARDIAL INFARCTION [None]
  - CIRCULATORY COLLAPSE [None]
  - GASTROINTESTINAL PERFORATION [None]
  - CONSTIPATION [None]
